FAERS Safety Report 4473714-5 (Version None)
Quarter: 2004Q4

REPORT INFORMATION
  Report Type: 
  Country: None (occurrence: None)
  Receive Date: 20041013
  Receipt Date: 20041005
  Transmission Date: 20050328
  Serious: Yes (Life-Threatening, Hospitalization, Disabling)
  Sender: FDA-Public Use
  Company Number: US-MERCK-0410USA00715

PATIENT
  Age: 55 Year
  Sex: Female

DRUGS (10)
  1. VICODIN [Concomitant]
     Indication: PAIN
     Route: 065
  2. NORVASC [Concomitant]
     Route: 065
  3. VASOTEC [Concomitant]
     Route: 048
  4. PREMARIN [Concomitant]
     Route: 065
  5. HYDRODIURIL [Concomitant]
     Route: 048
  6. TORADOL [Concomitant]
     Route: 065
  7. ROBAXIN [Concomitant]
     Route: 065
  8. QUININE [Concomitant]
     Route: 065
  9. VIOXX [Suspect]
     Indication: ARTHRITIS
     Route: 048
     Dates: end: 20040916
  10. RESTORIL [Concomitant]
     Route: 065

REACTIONS (2)
  - ARTHRITIS [None]
  - MALIGNANT NEOPLASM OF SPINAL CORD [None]
